FAERS Safety Report 15155700 (Version 2)
Quarter: 2018Q3

REPORT INFORMATION
  Report Type: Spontaneous
  Country: DE (occurrence: IT)
  Receive Date: 20180717
  Receipt Date: 20180720
  Transmission Date: 20181010
  Serious: Yes (Life-Threatening, Hospitalization, Other)
  Sender: FDA-Public Use
  Company Number: IT-PFIZER INC-K201000935

PATIENT
  Age: 40 Year
  Sex: Male

DRUGS (8)
  1. FUROSEMIDE. [Concomitant]
     Active Substance: FUROSEMIDE
     Indication: GLOMERULONEPHRITIS MEMBRANOUS
     Dosage: 125 MG, 1X/DAY
  2. ALTACE [Suspect]
     Active Substance: RAMIPRIL
     Indication: PORTAL HYPERTENSION
     Dosage: 2.5 MG, 1X/DAY
     Route: 048
     Dates: start: 200801, end: 200801
  3. LOSARTAN POTASSIUM. [Interacting]
     Active Substance: LOSARTAN POTASSIUM
     Dosage: UNK
     Dates: start: 200801, end: 200801
  4. ALTACE [Interacting]
     Active Substance: RAMIPRIL
     Dosage: UNK
  5. LOSARTAN POTASSIUM. [Interacting]
     Active Substance: LOSARTAN POTASSIUM
     Indication: PORTAL HYPERTENSION
     Dosage: 50 MG, 1X/DAY
     Route: 048
     Dates: start: 200712, end: 200801
  6. PROPANOLOL [Concomitant]
     Active Substance: PROPRANOLOL HYDROCHLORIDE
     Indication: HAEMORRHAGE PROPHYLAXIS
     Dosage: UNK
  7. ALTACE [Interacting]
     Active Substance: RAMIPRIL
     Indication: PROTEINURIA
     Dosage: 3 MG, UNK
     Route: 048
     Dates: start: 200801, end: 200801
  8. LOSARTAN POTASSIUM. [Interacting]
     Active Substance: LOSARTAN POTASSIUM
     Dosage: UNK

REACTIONS (5)
  - Hepatic encephalopathy [Recovered/Resolved with Sequelae]
  - Drug interaction [Recovered/Resolved]
  - Electroencephalogram abnormal [Recovered/Resolved with Sequelae]
  - Ammonia increased [Recovering/Resolving]
  - Loss of consciousness [Recovered/Resolved with Sequelae]

NARRATIVE: CASE EVENT DATE: 200801
